FAERS Safety Report 6406452-X (Version None)
Quarter: 2009Q4

REPORT INFORMATION
  Report Type: 
  Country: None (occurrence: None)
  Receive Date: 20091014
  Receipt Date: 20091002
  Transmission Date: 20100525
  Serious: Yes (Other)
  Sender: FDA-Public Use
  Company Number: 2009SP015451

PATIENT
  Age: 61 Year
  Sex: Male
  Weight: 84.369 kg

DRUGS (7)
  1. DR. SCHOLL'S FUNGAL NAIL REVITALIZER SYSTEM [Suspect]
     Indication: NAIL DISCOLOURATION
     Dosage: TOP
     Route: 061
     Dates: start: 20090523, end: 20090602
  2. NORVASC [Concomitant]
  3. CATAPRES [Concomitant]
  4. CAPOTEN [Concomitant]
  5. PHOSLO [Concomitant]
  6. SIMVASTATIN [Concomitant]
  7. AVANDAMET [Concomitant]

REACTIONS (5)
  - BLISTER [None]
  - CAUSTIC INJURY [None]
  - NAIL AVULSION [None]
  - NAIL INFECTION [None]
  - SKIN EXFOLIATION [None]
